FAERS Safety Report 8552819-3 (Version None)
Quarter: 2012Q3

REPORT INFORMATION
  Report Type: 
  Country: None (occurrence: None)
  Receive Date: 20120731
  Receipt Date: 20120726
  Transmission Date: 20120928
  Serious: Yes (Hospitalization, Other)
  Sender: FDA-Public Use
  Company Number: PHHY2011CA76270

PATIENT
  Sex: Female

DRUGS (6)
  1. SANDOSTATIN [Suspect]
     Indication: ACROMEGALY
     Dosage: 50 UG, UNK
     Route: 058
  2. HUMALOG [Concomitant]
  3. SYNTHROID [Concomitant]
     Dosage: 88 MG, TID
  4. LANREOTIDE [Concomitant]
  5. HUMALIN [Concomitant]
  6. SANDOSTATIN LAR [Suspect]
     Indication: ACROMEGALY
     Dosage: 20 MG EVERY 4 WEEKS
     Route: 030
     Dates: start: 20110729, end: 20110729

REACTIONS (6)
  - DIZZINESS [None]
  - LABYRINTHITIS [None]
  - VERTIGO [None]
  - VOMITING [None]
  - NAUSEA [None]
  - ASTHENIA [None]
